FAERS Safety Report 6236700-0 (Version None)
Quarter: 2009Q2

REPORT INFORMATION
  Report Type: 
  Country: None (occurrence: None)
  Receive Date: 20090619
  Receipt Date: 20090319
  Transmission Date: 20091009
  Serious: No
  Sender: FDA-Public Use
  Company Number: US-ASTRAZENECA-2009UW07161

PATIENT
  Age: 52 Year
  Sex: Male

DRUGS (2)
  1. ATACAND HCT [Suspect]
     Route: 048
     Dates: start: 20080101
  2. CRESTOR [Suspect]

REACTIONS (1)
  - FOOT FRACTURE [None]
